FAERS Safety Report 11509899 (Version 1)
Quarter: 2015Q3

REPORT INFORMATION
  Report Type: Spontaneous
  Country: US (occurrence: US)
  Receive Date: 20150915
  Receipt Date: 20150915
  Transmission Date: 20151125
  Serious: No
  Sender: FDA-Public Use
  Company Number: US-JNJFOC-20150800273

PATIENT
  Age: 49 Year
  Sex: Male
  Weight: 84 kg

DRUGS (2)
  1. VISINE A.C. [Suspect]
     Active Substance: TETRAHYDROZOLINE HYDROCHLORIDE\ZINC SULFATE
     Indication: HYPERSENSITIVITY
     Route: 047
     Dates: start: 20150402, end: 201504
  2. VISINE A.C. [Suspect]
     Active Substance: TETRAHYDROZOLINE HYDROCHLORIDE\ZINC SULFATE
     Route: 047

REACTIONS (3)
  - Eye disorder [Not Recovered/Not Resolved]
  - Eye irritation [Not Recovered/Not Resolved]
  - Drug ineffective [Unknown]
